FAERS Safety Report 10923782 (Version 3)
Quarter: 2015Q2

REPORT INFORMATION
  Report Type: Report from Study
  Country: US (occurrence: US)
  Receive Date: 20150318
  Receipt Date: 20150409
  Transmission Date: 20150821
  Serious: Yes (Hospitalization)
  Sender: FDA-Public Use
  Company Number: US-PFIZER INC-2015076107

PATIENT
  Age: 63 Year
  Sex: Male
  Weight: 90.7 kg

DRUGS (29)
  1. OXALIPLATIN. [Suspect]
     Active Substance: OXALIPLATIN
     Indication: PANCREATIC CARCINOMA
     Dosage: 85 MG/M2, Q 2 WEEKS
     Route: 042
     Dates: start: 20141113, end: 20150205
  2. FLUOROURACIL. [Suspect]
     Active Substance: FLUOROURACIL
     Dosage: 320 MG/M2
     Route: 040
     Dates: start: 20141205, end: 20150205
  3. CREON [Concomitant]
     Active Substance: PANCRELIPASE AMYLASE\PANCRELIPASE LIPASE\PANCRELIPASE PROTEASE
     Dosage: 12000 UNIT, 1 CAPSULE TID WF
     Route: 048
     Dates: start: 20141231
  4. DEXAMETHASONE. [Concomitant]
     Active Substance: DEXAMETHASONE
     Dosage: 4 MG, UNK
     Route: 048
     Dates: start: 20141106
  5. MAGNESIUM OXIDE. [Concomitant]
     Active Substance: MAGNESIUM OXIDE
     Dosage: 400 MG, QD
     Route: 048
     Dates: start: 20150219
  6. ATROPINE SULFATE/DIPHENOXYLATE [Concomitant]
     Dosage: 1 TABLET, Q6H
     Route: 048
     Dates: start: 20150102
  7. FLUOROURACIL. [Suspect]
     Active Substance: FLUOROURACIL
     Dosage: 400 MG/M2, CYCLIC
     Route: 040
     Dates: start: 20141113
  8. LIDOCAINE HYDROCHLORIDE/PRILOCAINE HYDROCHLORIDE [Concomitant]
     Dosage: [LIDOCAINE 2.5 G/PRILOCAINE 2.5G], AS DIRECTED (UD)
     Route: 061
     Dates: start: 20141106
  9. LOPERAMIDE HCL [Concomitant]
     Active Substance: LOPERAMIDE HYDROCHLORIDE
     Dosage: 2 MG, UNK
     Route: 048
     Dates: start: 20150108
  10. FLUOROURACIL. [Suspect]
     Active Substance: FLUOROURACIL
     Dosage: 1900 MG/M2, FOR CYCLE 3-6
     Route: 041
     Dates: start: 20141218
  11. ALPRAZOLAM. [Concomitant]
     Active Substance: ALPRAZOLAM
     Dosage: 0.25 MG, UNK
     Route: 048
     Dates: start: 20141103
  12. CREON [Concomitant]
     Active Substance: PANCRELIPASE AMYLASE\PANCRELIPASE LIPASE\PANCRELIPASE PROTEASE
     Dosage: 24000 IU, UNK
     Route: 048
     Dates: start: 20141103
  13. NEUPOGEN [Concomitant]
     Active Substance: FILGRASTIM
     Dosage: 480 MG/0.8 ML INJECTION SOLUTION
     Dates: start: 20150108
  14. PROCTOZONE HC [Concomitant]
     Active Substance: HYDROCORTISONE
     Dosage: UNK,  AS DIRECTED (UD), AS NEEDED
     Route: 061
     Dates: start: 201501
  15. FLUOROURACIL. [Suspect]
     Active Substance: FLUOROURACIL
     Indication: PANCREATIC CARCINOMA
     Dosage: 2400 MG/M2, FOR CYCLE 1-3
     Route: 041
     Dates: start: 20141113, end: 20141204
  16. LOMOTIL [Concomitant]
     Active Substance: ATROPINE SULFATE\DIPHENOXYLATE HYDROCHLORIDE
     Dosage: [DIPHENOXYLATE 2.5 MG/ ATROPINE 0.025 MG]
     Dates: start: 20150108
  17. ZOFRAN [Concomitant]
     Active Substance: ONDANSETRON HYDROCHLORIDE
     Dosage: 8 MG, UNK
     Route: 048
     Dates: start: 20141106
  18. OXYCODONE HYDROCHLORIDE. [Concomitant]
     Active Substance: OXYCODONE HYDROCHLORIDE
     Dosage: 5 MG, AS NEEDED
     Route: 048
     Dates: start: 20141024
  19. COMPAZINE [Concomitant]
     Active Substance: PROCHLORPERAZINE MALEATE
     Dosage: 10 MG, PRN
     Route: 048
     Dates: start: 20141113
  20. IRINOTECAN HCL [Suspect]
     Active Substance: IRINOTECAN HYDROCHLORIDE
     Indication: PANCREATIC CARCINOMA
     Dosage: 180 MG/M2, FOR CYCLE 1, Q 2 WEEKS
     Route: 042
     Dates: start: 20141113, end: 20141203
  21. PF-04136309 [Suspect]
     Active Substance: INVESTIGATIONAL PRODUCT
     Dosage: 375 MG, 2X/DAY FOR CYCLE 4-6, BID
     Route: 048
     Dates: start: 20150108, end: 20150214
  22. MAGIC MOUTHWASH [Concomitant]
     Active Substance: DIPHENHYDRAMINE HYDROCHLORIDE\LIDOCAINE HYDROCHLORIDE\NYSTATIN
     Dosage: 15 ML, SWISH AND SPIT PRN
     Route: 061
     Dates: start: 20150211
  23. LEUCOVORIN [Suspect]
     Active Substance: LEUCOVORIN
     Indication: PANCREATIC CARCINOMA
     Dosage: 400 MG/M2, Q2 WEEKS
     Route: 042
     Dates: start: 20141113, end: 20150205
  24. MORPHINE SULFATE. [Concomitant]
     Active Substance: MORPHINE SULFATE
     Dosage: 15 MG, Q4-6H, PRN
     Route: 048
     Dates: start: 20150216
  25. CALCIUM CARBONATE. [Concomitant]
     Active Substance: CALCIUM CARBONATE
     Dosage: 500 MG, BID PRN
     Route: 048
     Dates: start: 20150301
  26. IRINOTECAN HCL [Suspect]
     Active Substance: IRINOTECAN HYDROCHLORIDE
     Dosage: 150 MG/M2, Q 2 WEEKS
     Route: 042
     Dates: start: 20141205, end: 20150205
  27. PF-04136309 [Suspect]
     Active Substance: INVESTIGATIONAL PRODUCT
     Indication: PANCREATIC CARCINOMA
     Dosage: 500 MG, 2X/DAY FOR CYCLE 1-3, BID
     Route: 048
     Dates: start: 20141113, end: 20141229
  28. SIMETHICONE [Concomitant]
     Active Substance: DIMETHICONE\SILICON DIOXIDE\SIMETHICONE
     Dosage: 80 MG, FOUR TIMES A DAY (QID), AS NEEDED PRN
     Route: 048
     Dates: start: 20150102
  29. ACETAMINOPHEN. [Concomitant]
     Active Substance: ACETAMINOPHEN
     Dosage: 650 MG, PRN
     Route: 048
     Dates: start: 20150210

REACTIONS (1)
  - Systemic inflammatory response syndrome [Recovered/Resolved]

NARRATIVE: CASE EVENT DATE: 20150226
